FAERS Safety Report 8833107 (Version 1)
Quarter: 2012Q4

REPORT INFORMATION
  Report Type: Spontaneous
  Country: DE (occurrence: None)
  Receive Date: 20121005
  Receipt Date: 20121005
  Transmission Date: 20130627
  Serious: Yes (Other)
  Sender: FDA-Public Use
  Company Number: APL-2012-00162

PATIENT
  Age: 50 Year
  Sex: Male

DRUGS (2)
  1. PECFENT [Suspect]
     Indication: BREAKTHROUGH PAIN
     Dates: start: 201201, end: 201201
  2. PECFENT [Suspect]
     Indication: MESOTHELIOMA
     Dates: start: 201201, end: 201201

REACTIONS (1)
  - Ileus [None]
